FAERS Safety Report 8520755 (Version 15)
Quarter: 2013Q3

REPORT INFORMATION
  Report Type: Spontaneous
  Country: US (occurrence: US)
  Receive Date: 20120418
  Receipt Date: 20130726
  Transmission Date: 20140515
  Serious: No
  Sender: FDA-Public Use
  Company Number: US-ASTRAZENECA-2011SE41425

PATIENT
  Age: 51 Year
  Sex: Female
  Weight: 81.2 kg

DRUGS (30)
  1. NEXIUM [Suspect]
     Indication: GASTROOESOPHAGEAL REFLUX DISEASE
     Route: 048
     Dates: start: 2000, end: 2012
  2. NEXIUM [Suspect]
     Indication: GASTROOESOPHAGEAL REFLUX DISEASE
     Route: 048
     Dates: start: 2001, end: 2011
  3. NEXIUM [Suspect]
     Indication: GASTROOESOPHAGEAL REFLUX DISEASE
     Dosage: EVERYDAY
     Route: 048
     Dates: start: 2004, end: 2011
  4. NEXIUM [Suspect]
     Indication: GASTROOESOPHAGEAL REFLUX DISEASE
     Route: 048
     Dates: start: 20081208
  5. NEXIUM [Suspect]
     Indication: GASTROOESOPHAGEAL REFLUX DISEASE
     Route: 048
     Dates: start: 20090208
  6. NEXIUM [Suspect]
     Indication: GASTROOESOPHAGEAL REFLUX DISEASE
     Route: 048
     Dates: start: 20090708
  7. NEXIUM [Suspect]
     Indication: GASTROOESOPHAGEAL REFLUX DISEASE
     Route: 048
     Dates: start: 20100624
  8. PRILOSEC [Suspect]
     Indication: GASTROOESOPHAGEAL REFLUX DISEASE
     Dosage: ONCE A DAY
     Route: 048
     Dates: start: 2000, end: 2012
  9. PRILOSEC [Suspect]
     Indication: GASTROOESOPHAGEAL REFLUX DISEASE
     Dosage: ONCE A DAY
     Route: 048
  10. TUMS [Concomitant]
  11. PEPTO-BISMOL [Concomitant]
  12. ROLAIDS [Concomitant]
  13. HYDROCODON-ACETAMINOPH [Concomitant]
     Dates: start: 20091007
  14. NAPROXEN [Concomitant]
     Dates: start: 20091007
  15. METHYLPREDNISOLONE [Concomitant]
     Dates: start: 20091009
  16. METOPROLOL SUCC ER [Concomitant]
     Dates: start: 20091027
  17. ALPRAZOLAM [Concomitant]
     Dates: start: 20091027
  18. AZITHROMYCIN [Concomitant]
     Dates: start: 20110221
  19. AZITHROMYCIN [Concomitant]
     Dates: start: 20120424
  20. PEPCID [Concomitant]
     Dates: start: 2000, end: 2012
  21. PEPCID [Concomitant]
     Dates: start: 20110525
  22. MECLIZINE [Concomitant]
     Dates: start: 20120424
  23. PREVACID [Concomitant]
     Dates: start: 20110221
  24. ULTRAM [Concomitant]
     Indication: HAND FRACTURE
     Dates: start: 20081016
  25. BIAXIN [Concomitant]
     Dates: start: 20000413
  26. GUAIFEN/P EPHED [Concomitant]
     Dates: start: 20010209
  27. SULFAMETHOXAZOLE/TPM DS [Concomitant]
     Dates: start: 20020128
  28. CREVAST [Concomitant]
     Indication: GASTROOESOPHAGEAL REFLUX DISEASE
     Dates: start: 2000, end: 2012
  29. ZEBRA [Concomitant]
     Indication: GASTROOESOPHAGEAL REFLUX DISEASE
     Dates: start: 2000, end: 2012
  30. ZANTAC [Concomitant]
     Dates: start: 2000, end: 2012

REACTIONS (15)
  - Bone density decreased [Unknown]
  - Osteoporosis [Unknown]
  - Anxiety [Unknown]
  - Lower limb fracture [Unknown]
  - Ankle fracture [Unknown]
  - Hand fracture [Unknown]
  - Fibula fracture [Unknown]
  - Foot fracture [Unknown]
  - Tibia fracture [Unknown]
  - Emotional distress [Unknown]
  - Osteopenia [Unknown]
  - Pain [Unknown]
  - Panic attack [Unknown]
  - Vitamin D deficiency [Unknown]
  - Depression [Unknown]
